FAERS Safety Report 5955087-1 (Version None)
Quarter: 2008Q4

REPORT INFORMATION
  Report Type: 
  Country: None (occurrence: None)
  Receive Date: 20081117
  Receipt Date: 20081113
  Transmission Date: 20090506
  Serious: Yes (Hospitalization)
  Sender: FDA-Public Use
  Company Number: B0546551A

PATIENT
  Age: 44 Year
  Sex: Male

DRUGS (4)
  1. KIVEXA [Suspect]
     Indication: HIV INFECTION
     Dosage: 1TAB PER DAY
     Route: 048
     Dates: start: 20020306, end: 20080603
  2. VIREAD [Suspect]
     Indication: HIV INFECTION
     Dosage: 245MG PER DAY
     Route: 048
     Dates: start: 20020306, end: 20080603
  3. AMERIDE [Suspect]
     Indication: HYPERTENSION
     Route: 065
  4. AMLODIPINE [Suspect]
     Indication: HYPERTENSION
     Route: 065

REACTIONS (6)
  - ABDOMINAL PAIN UPPER [None]
  - ACUTE CORONARY SYNDROME [None]
  - ACUTE MYOCARDIAL INFARCTION [None]
  - ELECTROCARDIOGRAM ST SEGMENT ELEVATION [None]
  - PARAESTHESIA [None]
  - SENSATION OF HEAVINESS [None]
